FAERS Safety Report 6494747-3 (Version None)
Quarter: 2009Q4

REPORT INFORMATION
  Report Type: 
  Country: None (occurrence: None)
  Receive Date: 20091214
  Receipt Date: 20090320
  Transmission Date: 20100525
  Serious: No
  Sender: FDA-Public Use
  Company Number: US-BRISTOL-MYERS SQUIBB COMPANY-14554646

PATIENT
  Sex: Female

DRUGS (4)
  1. ABILIFY [Suspect]
     Dosage: TAKEN 10MG IN THE PAST AND STOPPED IT. A YEAR LATER PLACED ON ABILIFY 2MG
  2. WELLBUTRIN [Concomitant]
  3. LEXAPRO [Concomitant]
  4. LAMICTAL [Concomitant]

REACTIONS (1)
  - PARAESTHESIA [None]
